FAERS Safety Report 8439390 (Version 3)
Quarter: 2013Q1

REPORT INFORMATION
  Report Type: Spontaneous
  Country: US (occurrence: US)
  Receive Date: 20120302
  Receipt Date: 20130313
  Transmission Date: 20140127
  Serious: No
  Sender: FDA-Public Use
  Company Number: US-B.I. PHARMACEUTICALS,INC./RIDGEFIELD-2012-BP-03439BP

PATIENT
  Age: 70 None
  Sex: Female

DRUGS (14)
  1. SPIRIVA HANDIHALER [Suspect]
     Indication: ASTHMA
     Dosage: 18 MCG
     Route: 055
     Dates: start: 2009, end: 2009
  2. SPIRIVA HANDIHALER [Suspect]
     Indication: BRONCHITIS CHRONIC
     Dosage: 18 MG
     Route: 055
     Dates: start: 201101
  3. TENORMIN [Concomitant]
     Indication: HYPERTENSION
     Route: 048
  4. ALTACE [Concomitant]
     Indication: HYPERTENSION
     Route: 048
  5. IMDUR ER [Concomitant]
     Indication: HYPERTENSION
     Dosage: 30 MG
     Route: 048
  6. NIFEDIPINE [Concomitant]
     Indication: HYPERTENSION
     Route: 048
  7. LIPITOR [Concomitant]
     Indication: BLOOD CHOLESTEROL INCREASED
     Dosage: 20 MG
     Route: 048
  8. MIRTAZAPINE [Concomitant]
     Indication: DEPRESSION
     Dosage: 30 MG
     Route: 048
  9. KLONOPIN [Concomitant]
     Indication: ANXIETY
     Dosage: 1 MG
     Route: 048
  10. ESTER C [Concomitant]
     Indication: SUPPLEMENTATION THERAPY
     Dosage: 1000 MG
     Route: 048
  11. CENTRUM FOR WOMEN [Concomitant]
     Indication: SUPPLEMENTATION THERAPY
     Route: 048
  12. VITAMIN D [Concomitant]
     Indication: VITAMIN SUPPLEMENTATION
     Dosage: 4000 MG
     Route: 048
  13. BABY ASPIRIN [Concomitant]
     Indication: PROPHYLAXIS
     Dosage: 81 MG
     Route: 048
  14. TYLENOL [Concomitant]
     Indication: PAIN
     Route: 048

REACTIONS (9)
  - Dysphonia [Recovered/Resolved]
  - Aphonia [Recovered/Resolved]
  - Increased upper airway secretion [Not Recovered/Not Resolved]
  - Oropharyngeal pain [Not Recovered/Not Resolved]
  - Diarrhoea [Not Recovered/Not Resolved]
  - Nasal discharge discolouration [Not Recovered/Not Resolved]
  - Dysphonia [Not Recovered/Not Resolved]
  - Product quality issue [Unknown]
  - Product quality issue [Unknown]
